FAERS Safety Report 5257550-8 (Version None)
Quarter: 2007Q1

REPORT INFORMATION
  Report Type: 
  Country: None (occurrence: None)
  Receive Date: 20070307
  Receipt Date: 20060913
  Transmission Date: 20070707
  Serious: No
  Sender: FDA-Public Use
  Company Number: US-GLAXOSMITHKLINE-A0620074A

PATIENT
  Age: 59 Year
  Sex: Female

DRUGS (11)
  1. REQUIP [Suspect]
     Indication: RESTLESS LEGS SYNDROME
     Dosage: .5MG AT NIGHT
     Route: 048
     Dates: start: 20060801
  2. RENAGEL [Concomitant]
  3. ZOCOR [Concomitant]
  4. VITAMINS [Concomitant]
  5. SYNTHROID [Concomitant]
  6. IMDUR [Concomitant]
  7. MIDODRIN [Concomitant]
  8. COQ10 [Concomitant]
  9. BENADRYL [Concomitant]
  10. ASPIRIN [Concomitant]
  11. DARVOCET [Concomitant]

REACTIONS (6)
  - DIZZINESS [None]
  - FEELING ABNORMAL [None]
  - HEAD DISCOMFORT [None]
  - INSOMNIA [None]
  - NERVOUSNESS [None]
  - PALPITATIONS [None]
